FAERS Safety Report 7811764-9 (Version None)
Quarter: 2011Q4

REPORT INFORMATION
  Report Type: 
  Country: None (occurrence: None)
  Receive Date: 20111013
  Receipt Date: 20110929
  Transmission Date: 20120403
  Serious: Yes (Hospitalization)
  Sender: FDA-Public Use
  Company Number: US-ELI_LILLY_AND_COMPANY-US201106001865

PATIENT
  Sex: Female

DRUGS (2)
  1. FORTEO [Suspect]
     Indication: OSTEOPOROSIS
     Dosage: 20 UG, QD
     Dates: start: 20100101
  2. FORTEO [Suspect]
     Dosage: 20 UG, QD

REACTIONS (4)
  - ASTHMA [None]
  - ILL-DEFINED DISORDER [None]
  - PULMONARY CONGESTION [None]
  - DRUG DOSE OMISSION [None]
